FAERS Safety Report 10362317 (Version 2)
Quarter: 2014Q3

REPORT INFORMATION
  Report Type: Spontaneous
  Country: NO (occurrence: NO)
  Receive Date: 20140805
  Receipt Date: 20140805
  Transmission Date: 20150326
  Serious: Yes (Death, Hospitalization)
  Sender: FDA-Public Use
  Company Number: NO-SA-2014SA087310

PATIENT
  Age: 74 Year
  Sex: Female

DRUGS (8)
  1. PILOCARPINE [Concomitant]
     Active Substance: PILOCARPINE
     Indication: GLAUCOMA
     Dates: start: 198007
  2. ADRENALIN [Concomitant]
     Active Substance: EPINEPHRINE
     Indication: POLYNEUROPATHY
     Dates: start: 198007
  3. GLIBENCLAMIDE [Suspect]
     Active Substance: GLYBURIDE
     Indication: DIABETES MELLITUS
     Route: 065
  4. BLOCADREN [Concomitant]
     Active Substance: TIMOLOL MALEATE
     Indication: GLAUCOMA
     Dates: start: 198007
  5. PILOCARPINE [Concomitant]
     Active Substance: PILOCARPINE
     Indication: POLYNEUROPATHY
     Dates: start: 198007
  6. BLOCADREN [Concomitant]
     Active Substance: TIMOLOL MALEATE
     Indication: POLYNEUROPATHY
     Dates: start: 198007
  7. ACETAZOLAMIDE. [Suspect]
     Active Substance: ACETAZOLAMIDE
     Indication: GLAUCOMA
     Route: 065
     Dates: start: 198009
  8. ADRENALIN [Concomitant]
     Active Substance: EPINEPHRINE
     Indication: GLAUCOMA
     Dates: start: 198007

REACTIONS (11)
  - Kussmaul respiration [Fatal]
  - Hypotension [Fatal]
  - Cardiac arrest [Fatal]
  - Hypoglycaemia [Recovered/Resolved]
  - Blood bicarbonate decreased [Fatal]
  - General physical health deterioration [Fatal]
  - Dyspnoea [Fatal]
  - Metabolic acidosis [Fatal]
  - Respiratory arrest [Fatal]
  - Blood pH decreased [Fatal]
  - Hypothermia [Unknown]

NARRATIVE: CASE EVENT DATE: 1980
